FAERS Safety Report 9803267 (Version 1)
Quarter: 2014Q1

REPORT INFORMATION
  Report Type: Spontaneous
  Country: US (occurrence: None)
  Receive Date: 20140107
  Receipt Date: 20140107
  Transmission Date: 20141002
  Serious: Yes (Death, Life-Threatening, Hospitalization, Other)
  Sender: FDA-Public Use
  Company Number: None

PATIENT
  Age: 76 Year
  Sex: Male
  Weight: 88 kg

DRUGS (3)
  1. RITUXAN OR RITUXIMAB, IDEC PHARMACEUTICALS [Suspect]
     Indication: IMMUNE THROMBOCYTOPENIC PURPURA
     Dates: start: 20110902, end: 20110904
  2. BLOOD PRESSURE MEDICATION [Concomitant]
  3. WARFARIN [Concomitant]

REACTIONS (6)
  - Cellulitis [None]
  - Shock [None]
  - Skin disorder [None]
  - Muscle spasms [None]
  - Myeloproliferative disorder [None]
  - Pneumonia [None]
